FAERS Safety Report 9011864 (Version 1)
Quarter: 2012Q4

REPORT INFORMATION
  Report Type: Spontaneous
  Country: US (occurrence: None)
  Receive Date: 20121228
  Receipt Date: 20121228
  Transmission Date: 20130627
  Serious: Yes (Hospitalization)
  Sender: FDA-Public Use
  Company Number: JPI-P-026897

PATIENT
  Age: 62 Year
  Sex: Female
  Weight: 58.97 kg

DRUGS (16)
  1. XYREM (500 MILLIGRAM/MILLILITERS, SOLUTION) (SODIUM OXYBATE) [Suspect]
     Indication: NARCOLEPSY
     Dosage: (2.25 gm,2 in 1 D)
     Route: 048
     Dates: start: 200504, end: 2005
  2. XYREM (500 MILLIGRAM/MILLILITERS, SOLUTION) (SODIUM OXYBATE) [Suspect]
     Indication: EXCESSIVE DAYTIME SLEEPINESS
     Dosage: (2.25 gm,2 in 1 D)
     Route: 048
     Dates: start: 200504, end: 2005
  3. XYREM (500 MILLIGRAM/MILLILITERS, SOLUTION) (SODIUM OXYBATE) [Suspect]
     Indication: NARCOLEPSY
     Dates: start: 2005, end: 2005
  4. XYREM (500 MILLIGRAM/MILLILITERS, SOLUTION) (SODIUM OXYBATE) [Suspect]
     Indication: EXCESSIVE DAYTIME SLEEPINESS
     Dates: start: 2005, end: 2005
  5. XYREM (500 MILLIGRAM/MILLILITERS, SOLUTION) (SODIUM OXYBATE) [Suspect]
     Indication: NARCOLEPSY
     Dosage: (4.5 gm,2 in 1 D)
     Dates: start: 20050509
  6. XYREM (500 MILLIGRAM/MILLILITERS, SOLUTION) (SODIUM OXYBATE) [Suspect]
     Indication: EXCESSIVE DAYTIME SLEEPINESS
     Dosage: (4.5 gm,2 in 1 D)
     Dates: start: 20050509
  7. XYREM (500 MILLIGRAM/MILLILITERS, SOLUTION) (SODIUM OXYBATE) [Suspect]
     Indication: NARCOLEPSY
  8. XYREM (500 MILLIGRAM/MILLILITERS, SOLUTION) (SODIUM OXYBATE) [Suspect]
     Indication: EXCESSIVE DAYTIME SLEEPINESS
  9. MODAFINIL [Concomitant]
  10. MONTELUKAST [Concomitant]
  11. SIMVASTATIN [Concomitant]
  12. VENLAFAXINE [Concomitant]
  13. DICLOFENAC W/MISOPROSTOL [Concomitant]
  14. HYOSCYAMINE [Concomitant]
  15. LOSARTAN POTASSIUM W/HYDROCHLOROTHIAZIDE [Concomitant]
  16. OMEPRAZOLE [Concomitant]

REACTIONS (3)
  - Hip fracture [None]
  - Fall [None]
  - Pain [None]
